FAERS Safety Report 15082401 (Version 2)
Quarter: 2018Q3

REPORT INFORMATION
  Report Type: Spontaneous
  Country: US (occurrence: US)
  Receive Date: 20180628
  Receipt Date: 20180914
  Transmission Date: 20181010
  Serious: Yes (Other)
  Sender: FDA-Public Use
  Company Number: US-009507513-1806USA008651

PATIENT
  Age: 40 Year
  Sex: Male

DRUGS (6)
  1. INTEGRILIN [Suspect]
     Active Substance: EPTIFIBATIDE
     Indication: THROMBOSIS PROPHYLAXIS
  2. HEPARIN [Concomitant]
     Active Substance: HEPARIN SODIUM
     Indication: ANTICOAGULANT THERAPY
     Dosage: 8 UNITS/KG/HOUR FOR 24 HOURS
  3. HEPARIN [Concomitant]
     Active Substance: HEPARIN SODIUM
     Dosage: 8 UNITS/KG/HOUR
  4. INTEGRILIN [Suspect]
     Active Substance: EPTIFIBATIDE
     Indication: STENT PATENCY MAINTENANCE
     Dosage: INFUSION 2 MICROGRAM/KILOGRAM/MIN
  5. INTEGRILIN [Suspect]
     Active Substance: EPTIFIBATIDE
     Indication: ANTIPLATELET THERAPY
  6. ABCIXIMAB [Concomitant]
     Active Substance: ABCIXIMAB
     Dosage: UNK

REACTIONS (3)
  - Drug ineffective [Unknown]
  - Thrombosis [Unknown]
  - Haemorrhage [Unknown]
